FAERS Safety Report 7562659-X (Version None)
Quarter: 2011Q2

REPORT INFORMATION
  Report Type: 
  Country: None (occurrence: None)
  Receive Date: 20110622
  Receipt Date: 20110614
  Transmission Date: 20111010
  Serious: Yes (Hospitalization)
  Sender: FDA-Public Use
  Company Number: FR-BRISTOL-MYERS SQUIBB COMPANY-15834617

PATIENT
  Age: 89 Year
  Sex: Male
  Weight: 65 kg

DRUGS (5)
  1. AMIODARONE HCL [Suspect]
     Route: 048
  2. PREVISCAN [Suspect]
     Route: 048
  3. IRBESARTAN [Suspect]
     Indication: HYPERTENSION
     Dosage: FOR A LONG TIME
     Dates: end: 20110108
  4. FUROSEMIDE [Suspect]
     Route: 048
  5. OXEOL [Suspect]
     Route: 048

REACTIONS (4)
  - RENAL FAILURE [None]
  - GENERAL PHYSICAL HEALTH DETERIORATION [None]
  - HYPOTENSION [None]
  - ANAEMIA [None]
